FAERS Safety Report 25185260 (Version 3)
Quarter: 2025Q2

REPORT INFORMATION
  Report Type: Spontaneous
  Country: CA (occurrence: CA)
  Receive Date: 20250410
  Receipt Date: 20250507
  Transmission Date: 20250717
  Serious: Yes (Hospitalization, Other)
  Sender: PFIZER
  Company Number: CA-PFIZER INC-202300166561

PATIENT
  Age: 68 Year
  Sex: Female
  Weight: 80.4 kg

DRUGS (12)
  1. RUXIENCE [Suspect]
     Active Substance: RITUXIMAB-PVVR
     Indication: Granulomatosis with polyangiitis
     Dosage: 630 MG, WEEKLY (WEEKLY FOR 4 WEEKS)
     Route: 042
     Dates: start: 20230420, end: 20230420
  2. RUXIENCE [Suspect]
     Active Substance: RITUXIMAB-PVVR
     Dosage: 630 MG, WEEKLY (WEEKLY FOR 4 WEEKS)
     Route: 042
     Dates: start: 20230420, end: 20230420
  3. RUXIENCE [Suspect]
     Active Substance: RITUXIMAB-PVVR
     Dosage: 630 MG, WEEKLY (WEEKLY FOR 4 WEEKS)
     Route: 042
     Dates: start: 20230427, end: 20230427
  4. RUXIENCE [Suspect]
     Active Substance: RITUXIMAB-PVVR
     Dosage: 630 MG, WEEKLY (WEEKLY FOR 4 WEEKS)
     Route: 042
     Dates: start: 20230427, end: 20230427
  5. RUXIENCE [Suspect]
     Active Substance: RITUXIMAB-PVVR
     Dosage: 643 MG, WEEKLY (WEEKLY FOR 4 WEEKS)
     Route: 042
     Dates: start: 20230503, end: 20230503
  6. RUXIENCE [Suspect]
     Active Substance: RITUXIMAB-PVVR
     Dosage: 643 MG, WEEKLY (WEEKLY FOR 4 WEEKS)
     Route: 042
     Dates: start: 20230503, end: 20230503
  7. RUXIENCE [Suspect]
     Active Substance: RITUXIMAB-PVVR
     Dosage: 630 MG, WEEKLY, (AFTER 1 WEEK)
     Route: 042
     Dates: start: 20230510, end: 20230510
  8. RUXIENCE [Suspect]
     Active Substance: RITUXIMAB-PVVR
     Dosage: 630 MG, WEEKLY, (AFTER 1 WEEK)
     Route: 042
     Dates: start: 20230510, end: 20230510
  9. RUXIENCE [Suspect]
     Active Substance: RITUXIMAB-PVVR
     Route: 042
     Dates: start: 20231214, end: 20231214
  10. RUXIENCE [Suspect]
     Active Substance: RITUXIMAB-PVVR
     Route: 042
     Dates: start: 20240729, end: 20240729
  11. IRBESARTAN [Concomitant]
     Active Substance: IRBESARTAN
  12. PREDNISONE [Concomitant]
     Active Substance: PREDNISONE
     Dates: start: 20230331

REACTIONS (6)
  - Post procedural pneumonia [Unknown]
  - Knee arthroplasty [Unknown]
  - Hip arthroplasty [Unknown]
  - Off label use [Unknown]
  - Intentional product use issue [Unknown]
  - Off label use [Unknown]

NARRATIVE: CASE EVENT DATE: 20230420
